FAERS Safety Report 15544516 (Version 6)
Quarter: 2021Q4

REPORT INFORMATION
  Report Type: Report from Study
  Country: US (occurrence: US)
  Receive Date: 20181024
  Receipt Date: 20211115
  Transmission Date: 20220304
  Serious: Yes (Hospitalization, Other)
  Sender: FDA-Public Use
  Company Number: None

PATIENT
  Sex: Female

DRUGS (1)
  1. ENTRESTO [Suspect]
     Active Substance: SACUBITRIL\VALSARTAN
     Dosage: UNK
     Route: 065

REACTIONS (11)
  - Chronic obstructive pulmonary disease [Unknown]
  - Cardiac failure [Not Recovered/Not Resolved]
  - Hallucination [Unknown]
  - Cardiac disorder [Unknown]
  - Gout [Unknown]
  - Gait inability [Unknown]
  - Dysstasia [Unknown]
  - Hypoacusis [Unknown]
  - Dyspnoea [Unknown]
  - Illness [Unknown]
  - Malaise [Unknown]
